FAERS Safety Report 4503403-X (Version None)
Quarter: 2004Q4

REPORT INFORMATION
  Report Type: 
  Country: None (occurrence: None)
  Receive Date: 20041117
  Receipt Date: 20041108
  Transmission Date: 20050328
  Serious: Yes (Hospitalization)
  Sender: FDA-Public Use
  Company Number: CZ-GLAXOSMITHKLINE-B0356699A

PATIENT
  Age: 83 Year
  Sex: Female

DRUGS (5)
  1. REQUIP [Suspect]
     Indication: PARKINSON'S DISEASE
     Dosage: 1MG THREE TIMES PER DAY
     Route: 048
     Dates: start: 20040902, end: 20041006
  2. ISICOM [Concomitant]
     Dosage: 250MG FIVE TIMES PER DAY
     Dates: start: 20020101
  3. MADOPAR [Concomitant]
     Dosage: 1U AT NIGHT
     Dates: start: 20020101
  4. IBALGIN [Concomitant]
     Indication: PAIN
     Dosage: 600U UNKNOWN
  5. ALNAGON [Concomitant]
     Indication: PAIN

REACTIONS (2)
  - DEMENTIA [None]
  - HALLUCINATION [None]
